FAERS Safety Report 12679196 (Version 2)
Quarter: 2016Q4

REPORT INFORMATION
  Report Type: Spontaneous
  Country: BR (occurrence: BR)
  Receive Date: 20160824
  Receipt Date: 20161006
  Transmission Date: 20170207
  Serious: Yes (Other)
  Sender: FDA-Public Use
  Company Number: BR-PFIZER INC-2016392317

PATIENT
  Sex: Female

DRUGS (2)
  1. XALATAN [Suspect]
     Active Substance: LATANOPROST
     Dosage: UNK
     Route: 047
  2. XALATAN [Suspect]
     Active Substance: LATANOPROST
     Dosage: UNK
     Route: 047
     Dates: start: 2009

REACTIONS (2)
  - Glaucoma [Unknown]
  - Visual acuity reduced [Unknown]
